FAERS Safety Report 25032298 (Version 1)
Quarter: 2025Q1

REPORT INFORMATION
  Report Type: Spontaneous
  Country: US (occurrence: None)
  Receive Date: 20250303
  Receipt Date: 20250303
  Transmission Date: 20250408
  Serious: Yes (Other)
  Sender: FDA-CTU
  Company Number: None

PATIENT
  Age: 42 Year
  Sex: Female
  Weight: 134.26 kg

DRUGS (1)
  1. VOWST [Suspect]
     Active Substance: DONOR HUMAN STOOL SPORES (ETHANOL TREATED)
     Indication: Enterocolitis
     Dosage: FREQUENCY : DAILY;?
     Route: 048
     Dates: start: 20250301, end: 20250303

REACTIONS (3)
  - Palpitations [None]
  - Fatigue [None]
  - Blood electrolytes abnormal [None]

NARRATIVE: CASE EVENT DATE: 20250301
